FAERS Safety Report 8240910-0 (Version None)
Quarter: 2012Q1

REPORT INFORMATION
  Report Type: 
  Country: None (occurrence: None)
  Receive Date: 20120328
  Receipt Date: 20110824
  Transmission Date: 20120608
  Serious: Yes (Other)
  Sender: FDA-Public Use
  Company Number: US-JHP PHARMACEUTICALS, LLC-JHP201100412

PATIENT
  Sex: Male

DRUGS (2)
  1. DANTRIUM [Suspect]
     Indication: NEUROLEPTIC MALIGNANT SYNDROME
     Dosage: 75 MG, EVERY 6 HOURS
     Route: 042
  2. DANTRIUM [Suspect]
     Indication: OFF LABEL USE
     Dosage: 150 MG, EVERY 6 HOURS
     Route: 042

REACTIONS (2)
  - INFUSION SITE NECROSIS [None]
  - OFF LABEL USE [None]
